FAERS Safety Report 4348962-5 (Version None)
Quarter: 2004Q2

REPORT INFORMATION
  Report Type: 
  Country: None (occurrence: None)
  Receive Date: 20040423
  Receipt Date: 20040412
  Transmission Date: 20050107
  Serious: Yes (Hospitalization)
  Sender: FDA-Public Use
  Company Number: HQWYE432712APR04

PATIENT
  Age: 15 Year
  Sex: Female

DRUGS (2)
  1. EFFEXOR XR [Suspect]
     Indication: DEPRESSION
     Dosage: 75 MG 1X PER 1 DAY, ORAL;  150 MG 1X PER 1 DAY, ORAL
     Route: 048
     Dates: start: 20031201
  2. ADVIL [Suspect]
     Dosage: ^HANDFUL OF 200MG TABLETS^ (OVERDOSE AMOUNT), ORAL
     Route: 048
     Dates: start: 20040305, end: 20040305

REACTIONS (8)
  - ABNORMAL BEHAVIOUR [None]
  - DRUG INEFFECTIVE [None]
  - EDUCATIONAL PROBLEM [None]
  - HOSTILITY [None]
  - INTENTIONAL OVERDOSE [None]
  - PERSONALITY CHANGE [None]
  - SOCIAL PROBLEM [None]
  - SUICIDE ATTEMPT [None]
